FAERS Safety Report 9369986 (Version 1)
Quarter: 2013Q2

REPORT INFORMATION
  Report Type: Spontaneous
  Country: JP (occurrence: JP)
  Receive Date: 20130626
  Receipt Date: 20130626
  Transmission Date: 20140414
  Serious: Yes (Other)
  Sender: FDA-Public Use
  Company Number: JP-009507513-1306JPN010328

PATIENT
  Age: 70 Year
  Sex: Female

DRUGS (2)
  1. SINGULAIR [Suspect]
     Indication: ASTHMA
     Dosage: POR, DAILY DOSAGE UNKNOWN
     Route: 048
  2. FLUTIDE [Concomitant]
     Indication: ASTHMA
     Dosage: INH, DAILY DOSAGE UNKNOWN
     Route: 048

REACTIONS (1)
  - Allergic granulomatous angiitis [Not Recovered/Not Resolved]
